FAERS Safety Report 8935813 (Version 1)
Quarter: 2012Q4

REPORT INFORMATION
  Report Type: 
  Country: FR (occurrence: FR)
  Receive Date: 20121130
  Receipt Date: 20121130
  Transmission Date: 20130627
  Serious: Yes (Hospitalization, Other)
  Sender: FDA-Public Use
  Company Number: FR-ASTELLAS-2012JP011092

PATIENT
  Age: 66 Year
  Sex: Male

DRUGS (11)
  1. TACROLIMUS [Suspect]
     Dosage: UNK
     Route: 065
     Dates: end: 201208
  2. LOXEN [Suspect]
     Dosage: UNK
     Route: 048
     Dates: end: 20121012
  3. NEORAL [Suspect]
     Dosage: UNK
     Route: 048
     Dates: end: 20120902
  4. INEXIUM [Suspect]
     Indication: STRESS
     Dosage: UNK
     Route: 048
  5. TEMERIT [Suspect]
     Dosage: UNK
     Route: 048
     Dates: end: 20121012
  6. EUPRESSYL [Suspect]
     Dosage: UNK
     Route: 048
     Dates: end: 20121012
  7. PARACETAMOL [Concomitant]
     Dosage: UNK
     Route: 065
  8. CELLCEPT                           /01275102/ [Concomitant]
     Dosage: UNK
     Route: 065
     Dates: start: 20120727
  9. KEPPRA [Concomitant]
     Indication: CONVULSION
     Dosage: UNK
     Route: 065
     Dates: start: 201208
  10. LASILIX                            /00032601/ [Concomitant]
     Indication: ACUTE PULMONARY OEDEMA
     Dosage: 120 mg, UID/QD
     Route: 065
     Dates: start: 201208
  11. LASILIX                            /00032601/ [Concomitant]
     Dosage: 125 mg, bid
     Route: 065

REACTIONS (10)
  - Peritonitis [Unknown]
  - Cardiorenal syndrome [Unknown]
  - Renal failure acute [Recovering/Resolving]
  - Hypertension [Not Recovered/Not Resolved]
  - Pleural infection [Unknown]
  - Lung disorder [Unknown]
  - Acute respiratory failure [Unknown]
  - Convulsion [Unknown]
  - Pulmonary oedema [Unknown]
  - Ascites [Unknown]
